FAERS Safety Report 4644337-X (Version None)
Quarter: 2005Q2

REPORT INFORMATION
  Report Type: 
  Country: None (occurrence: None)
  Receive Date: 20050422
  Receipt Date: 20050408
  Transmission Date: 20051028
  Serious: Yes (Death)
  Sender: FDA-Public Use
  Company Number: 200510067BVD

PATIENT
  Age: 72 Year
  Sex: Female
  Weight: 50 kg

DRUGS (5)
  1. ASPIRIN [Suspect]
     Dosage: 100 MG, TOTAL DAILY, ORAL
     Route: 048
     Dates: start: 20010731, end: 20040101
  2. CONCOR [Concomitant]
  3. ACE INHIBITOR [Concomitant]
  4. NIFEDIPINE [Concomitant]
  5. NORVASC [Concomitant]

REACTIONS (3)
  - BRAIN STEM SYNDROME [None]
  - CEREBELLAR HAEMORRHAGE [None]
  - HYDROCEPHALUS [None]
